FAERS Safety Report 12783127 (Version 1)
Quarter: 2016Q3

REPORT INFORMATION
  Report Type: Spontaneous
  Country: US (occurrence: US)
  Receive Date: 20160927
  Receipt Date: 20160927
  Transmission Date: 20161109
  Serious: Yes (Other)
  Sender: FDA-Public Use
  Company Number: US-BEH-2009020079

PATIENT
  Age: 46 Year
  Sex: Female
  Weight: 53.98 kg

DRUGS (4)
  1. VIVAGLOBIN [Suspect]
     Active Substance: HUMAN IMMUNOGLOBULIN G
     Indication: IMMUNODEFICIENCY COMMON VARIABLE
     Dosage: 50 ML WEEKLY OVER 4 SITES
     Route: 030
     Dates: start: 200811
  2. VIVAGLOBIN [Suspect]
     Active Substance: HUMAN IMMUNOGLOBULIN G
     Route: 030
     Dates: start: 200903, end: 200903
  3. VIVAGLOBIN [Suspect]
     Active Substance: HUMAN IMMUNOGLOBULIN G
     Route: 030
     Dates: start: 200901, end: 200902
  4. VIVAGLOBIN [Suspect]
     Active Substance: HUMAN IMMUNOGLOBULIN G
     Dosage: 15 ML WEEKLY
     Route: 058
     Dates: start: 201001

REACTIONS (19)
  - Flushing [Recovered/Resolved]
  - Injection site erythema [Recovered/Resolved]
  - Back pain [Recovered/Resolved]
  - Injection site pain [Recovered/Resolved]
  - Headache [Unknown]
  - Nausea [Recovered/Resolved]
  - Back pain [Recovered/Resolved]
  - Chills [Recovering/Resolving]
  - Deafness [Not Recovered/Not Resolved]
  - Injection site pruritus [Recovered/Resolved]
  - Injection site haemorrhage [Recovered/Resolved]
  - Chills [Recovered/Resolved]
  - Vision blurred [Recovered/Resolved]
  - Injection site induration [Recovered/Resolved]
  - Bone pain [Unknown]
  - Abdominal discomfort [Unknown]
  - Headache [Recovered/Resolved]
  - Bone pain [Recovered/Resolved]
  - Headache [Recovered/Resolved]

NARRATIVE: CASE EVENT DATE: 2009
